FAERS Safety Report 25585719 (Version 1)
Quarter: 2025Q3

REPORT INFORMATION
  Report Type: Spontaneous
  Country: US (occurrence: None)
  Receive Date: 20250718
  Receipt Date: 20250718
  Transmission Date: 20251020
  Serious: No
  Sender: FDA-CTU
  Company Number: None

PATIENT

DRUGS (7)
  1. LUMIGAN [Suspect]
     Active Substance: BIMATOPROST
  2. BETIMOL [Suspect]
     Active Substance: TIMOLOL
  3. TIMOLOL [Suspect]
     Active Substance: TIMOLOL
  4. XALATAN [Suspect]
     Active Substance: LATANOPROST
  5. COSOPT [Suspect]
     Active Substance: DORZOLAMIDE HYDROCHLORIDE\TIMOLOL MALEATE
  6. DIETARY SUPPLEMENT [Suspect]
     Active Substance: DIETARY SUPPLEMENT
  7. COMBIGAN [Suspect]
     Active Substance: BRIMONIDINE TARTRATE\TIMOLOL MALEATE

REACTIONS (1)
  - Treatment failure [None]
